FAERS Safety Report 23410656 (Version 1)
Quarter: 2024Q1

REPORT INFORMATION
  Report Type: Spontaneous
  Country: US (occurrence: US)
  Receive Date: 20240117
  Receipt Date: 20240117
  Transmission Date: 20240410
  Serious: No
  Sender: FDA-Public Use
  Company Number: US-SK LIFE SCIENCE, INC-SKPVG-2022-000950

PATIENT

DRUGS (10)
  1. XCOPRI [Suspect]
     Active Substance: CENOBAMATE
     Indication: Seizure
     Dosage: 12.5 MILLIGRAM
     Route: 065
     Dates: start: 20220711, end: 20220724
  2. XCOPRI [Suspect]
     Active Substance: CENOBAMATE
     Dosage: 25 MILLIGRAM
     Route: 065
     Dates: start: 2022, end: 20220807
  3. XCOPRI [Suspect]
     Active Substance: CENOBAMATE
     Dosage: 50 MILLIGRAM
     Route: 065
     Dates: start: 20220808, end: 20220821
  4. XCOPRI [Suspect]
     Active Substance: CENOBAMATE
     Dosage: 100 MILLIGRAM
     Route: 065
     Dates: start: 20220822, end: 20220904
  5. XCOPRI [Suspect]
     Active Substance: CENOBAMATE
     Dosage: 150 MILLIGRAM
     Route: 065
     Dates: start: 20220905, end: 20220918
  6. XCOPRI [Suspect]
     Active Substance: CENOBAMATE
     Dosage: 200 MILLIGRAM, QD
     Route: 065
     Dates: start: 20220919, end: 20221214
  7. XCOPRI [Suspect]
     Active Substance: CENOBAMATE
     Dosage: 300 MILLIGRAM
     Route: 065
     Dates: start: 202212
  8. LAMOTRIGINE [Concomitant]
     Active Substance: LAMOTRIGINE
     Indication: Product used for unknown indication
     Dosage: 200 MILLIGRAM X 2
     Route: 065
  9. TIAGABINE [Concomitant]
     Active Substance: TIAGABINE
     Indication: Product used for unknown indication
     Dosage: 15 MILLIGRAM X 2
     Route: 065
  10. CLOBAZAM [Concomitant]
     Active Substance: CLOBAZAM
     Indication: Product used for unknown indication
     Dosage: 15 MILLIGRAM X 2
     Route: 065

REACTIONS (1)
  - Product use issue [Recovered/Resolved]

NARRATIVE: CASE EVENT DATE: 20221213
